FAERS Safety Report 7121046-9 (Version None)
Quarter: 2010Q4

REPORT INFORMATION
  Report Type: 
  Country: None (occurrence: None)
  Receive Date: 20101124
  Receipt Date: 20101115
  Transmission Date: 20110411
  Serious: Yes (Other)
  Sender: FDA-Public Use
  Company Number: CN-NOVOPROD-318598

PATIENT
  Age: 66 Year
  Sex: Female

DRUGS (2)
  1. NOVONORM [Suspect]
     Indication: TYPE 2 DIABETES MELLITUS
     Dosage: 1 MG, BID
     Route: 048
     Dates: start: 20090801, end: 20090801
  2. LEVOTHYROXINE SODIUM [Concomitant]
     Indication: HYPOTHYROIDISM
     Dosage: 50 UG, QD

REACTIONS (1)
  - HYPOGLYCAEMIC UNCONSCIOUSNESS [None]
